FAERS Safety Report 12036845 (Version 3)
Quarter: 2016Q3

REPORT INFORMATION
  Report Type: Report from Study
  Country: NL (occurrence: NL)
  Receive Date: 20160208
  Receipt Date: 20160902
  Transmission Date: 20161109
  Serious: Yes (Other)
  Sender: FDA-Public Use
  Company Number: NL-BRISTOL-MYERS SQUIBB COMPANY-13870324

PATIENT
  Sex: Female

DRUGS (5)
  1. BLINDED METFORMIN HYDROCHLORIDE [Suspect]
     Active Substance: METFORMIN HYDROCHLORIDE
     Dosage: 2000 MG, QD
     Route: 065
  2. BLINDED PLACEBO [Suspect]
     Active Substance: INVESTIGATIONAL PRODUCT
     Indication: POLYCYSTIC OVARIES
     Dosage: 500 MG, QD
     Route: 065
  3. EXTERNAL-CLOMIPHENE [Suspect]
     Active Substance: CLOMIPHENE
     Indication: POLYCYSTIC OVARIES
     Dosage: 50 MG, QD
     Route: 065
  4. BLINDED METFORMIN HYDROCHLORIDE [Suspect]
     Active Substance: METFORMIN HYDROCHLORIDE
     Indication: POLYCYSTIC OVARIES
     Dosage: 500 MG, QD
     Route: 065
  5. BLINDED PLACEBO [Suspect]
     Active Substance: INVESTIGATIONAL PRODUCT
     Dosage: 2000 MG, QD
     Route: 065

REACTIONS (4)
  - Caesarean section [Unknown]
  - Pre-eclampsia [Unknown]
  - Pregnancy [Recovered/Resolved]
  - Premature delivery [Unknown]
